FAERS Safety Report 4819142-1 (Version None)
Quarter: 2005Q4

REPORT INFORMATION
  Report Type: 
  Country: None (occurrence: None)
  Receive Date: 20051101
  Receipt Date: 20051019
  Transmission Date: 20060501
  Serious: Yes (Life-Threatening)
  Sender: FDA-Public Use
  Company Number: 2005RR-00987

PATIENT
  Age: 71 Year
  Sex: Male

DRUGS (5)
  1. ASPIRIN [Suspect]
     Dosage: 75 MG , QD, ORAL
     Route: 048
  2. DICLOFENAC SODIUM [Suspect]
     Indication: HIP ARTHROPLASTY
     Dosage: 50 MG, TID, ORAL
     Route: 048
     Dates: start: 20050908, end: 20050919
  3. PERINDOPRIL [Concomitant]
  4. BENDROFLUMETHIAZIDE [Concomitant]
  5. ADALAT CC [Concomitant]

REACTIONS (6)
  - DIZZINESS [None]
  - DYSPNOEA [None]
  - FAECES DISCOLOURED [None]
  - HAEMATEMESIS [None]
  - HYPOTENSION [None]
  - LETHARGY [None]
